FAERS Safety Report 4974993-8 (Version None)
Quarter: 2006Q2

REPORT INFORMATION
  Report Type: 
  Country: None (occurrence: None)
  Receive Date: 20060418
  Receipt Date: 20060317
  Transmission Date: 20061013
  Serious: Yes (Hospitalization)
  Sender: FDA-Public Use
  Company Number: FR-AMGEN-UK173492

PATIENT
  Age: 59 Year
  Sex: Female

DRUGS (12)
  1. KEPIVANCE [Suspect]
     Indication: MUCOSAL INFLAMMATION
     Route: 042
     Dates: start: 20060113, end: 20060115
  2. COVERSYL [Suspect]
     Route: 048
     Dates: start: 20051207
  3. CYCLOPHOSPHAMIDE [Concomitant]
     Route: 065
     Dates: start: 20050825
  4. VINCRISTINE [Concomitant]
     Route: 065
     Dates: start: 20050825
  5. DOXORUBICIN HCL [Concomitant]
     Route: 065
     Dates: start: 20050825, end: 20051026
  6. METHYLPREDNISOLONE [Concomitant]
     Route: 065
     Dates: start: 20050825
  7. MESNA [Concomitant]
     Route: 065
     Dates: start: 20050825, end: 20051026
  8. METHOTREXATE [Concomitant]
     Route: 065
     Dates: start: 20050825, end: 20051026
  9. CARMUSTINE [Concomitant]
     Route: 065
     Dates: start: 20060116, end: 20060124
  10. ETOPOSIDE [Concomitant]
     Route: 065
     Dates: start: 20060116, end: 20060124
  11. MELPHALAN [Concomitant]
     Route: 065
     Dates: start: 20060116, end: 20060124
  12. CYTARABINE [Concomitant]
     Route: 065
     Dates: start: 20060116, end: 20060124

REACTIONS (8)
  - CONDITION AGGRAVATED [None]
  - ERYTHEMA [None]
  - PRURITUS [None]
  - PURPURA [None]
  - RASH [None]
  - RASH GENERALISED [None]
  - SCAR [None]
  - STEM CELL TRANSPLANT [None]
